FAERS Safety Report 5787942-X (Version None)
Quarter: 2008Q2

REPORT INFORMATION
  Report Type: 
  Country: None (occurrence: None)
  Receive Date: 20080625
  Receipt Date: 20080616
  Transmission Date: 20081010
  Serious: Yes (Hospitalization)
  Sender: FDA-Public Use
  Company Number: B0525647A

PATIENT
  Age: 64 Year
  Sex: Male

DRUGS (9)
  1. FORTUM [Suspect]
     Dosage: 6G PER DAY
     Route: 042
     Dates: start: 20071126, end: 20071201
  2. GENTAMICIN [Suspect]
     Dosage: 3MGK PER DAY
     Route: 042
     Dates: start: 20071126, end: 20071128
  3. LOVENOX [Concomitant]
     Indication: THROMBOSIS PROPHYLAXIS
     Dosage: 4000IU PER DAY
     Route: 042
     Dates: start: 20071127, end: 20071201
  4. LASILIX FAIBLE 20 MG [Concomitant]
     Dosage: 40MG PER DAY
     Route: 048
  5. INSULATARD [Concomitant]
     Route: 058
  6. MIXTARD HUMAN 70/30 [Concomitant]
     Indication: DRUG USE FOR UNKNOWN INDICATION
     Route: 065
  7. LANTUS [Concomitant]
     Indication: DRUG USE FOR UNKNOWN INDICATION
     Route: 065
  8. PERFALGAN [Concomitant]
     Indication: DRUG USE FOR UNKNOWN INDICATION
     Route: 065
  9. OMEPRAZOLE [Concomitant]
     Indication: DRUG USE FOR UNKNOWN INDICATION
     Route: 065

REACTIONS (3)
  - BLOODY DISCHARGE [None]
  - POST PROCEDURAL HAEMORRHAGE [None]
  - THROMBOCYTOPENIA [None]
